FAERS Safety Report 14045852 (Version 1)
Quarter: 2017Q4

REPORT INFORMATION
  Report Type: Spontaneous
  Country: US (occurrence: US)
  Receive Date: 20171005
  Receipt Date: 20171005
  Transmission Date: 20180321
  Serious: No
  Sender: FDA-Public Use
  Company Number: US-INDIVIOR LIMITED-INDV-103380-2017

PATIENT
  Age: 63 Year
  Sex: Male

DRUGS (1)
  1. SUBOXONE [Suspect]
     Active Substance: BUPRENORPHINE HYDROCHLORIDE\NALOXONE HYDROCHLORIDE
     Indication: DRUG USE DISORDER
     Dosage: 8 MG, UNK
     Route: 060
     Dates: start: 20170726, end: 20170728

REACTIONS (7)
  - Dysgeusia [Recovering/Resolving]
  - Rash [Recovering/Resolving]
  - Agitation [Recovering/Resolving]
  - Feeling abnormal [Unknown]
  - Chest pain [Recovering/Resolving]
  - Euphoric mood [Unknown]
  - Parosmia [Recovering/Resolving]

NARRATIVE: CASE EVENT DATE: 201707
